FAERS Safety Report 7086575-5 (Version None)
Quarter: 2010Q4

REPORT INFORMATION
  Report Type: 
  Country: None (occurrence: None)
  Receive Date: 20101028
  Receipt Date: 20101022
  Transmission Date: 20110411
  Serious: Yes (Death)
  Sender: FDA-Public Use
  Company Number: 2010US004405

PATIENT
  Age: 70 Year
  Sex: Male

DRUGS (1)
  1. AMBISOME [Suspect]
     Indication: EMPHYSEMA
     Dosage: 150 MG, UID/QD, IV NOS
     Route: 042
     Dates: start: 20101001, end: 20101019

REACTIONS (2)
  - ASPERGILLOSIS [None]
  - FUNGAL ENDOCARDITIS [None]
